FAERS Safety Report 9271727 (Version 2)
Quarter: 2013Q2

REPORT INFORMATION
  Report Type: Report from Study
  Country: CL (occurrence: CL)
  Receive Date: 20130506
  Receipt Date: 20130513
  Transmission Date: 20140414
  Serious: Yes (Other)
  Sender: FDA-Public Use
  Company Number: PHHY2013CL044103

PATIENT
  Age: 77 Year
  Sex: Female

DRUGS (2)
  1. GALVUS MET [Suspect]
     Indication: DIABETES MELLITUS
     Dosage: 1 DF, TID (METF 850MG, VILD 50MG)
     Route: 048
  2. EXFORGE D [Suspect]
     Indication: BLOOD PRESSURE ABNORMAL
     Dosage: 1 DF, (VALS 160MG, AMLO 5 MG, HCTZ 12.5 MG)
     Route: 048

REACTIONS (3)
  - Hip fracture [Recovering/Resolving]
  - Fractured coccyx [Recovering/Resolving]
  - Fall [Recovering/Resolving]
